FAERS Safety Report 22083591 (Version 1)
Quarter: 2023Q1

REPORT INFORMATION
  Report Type: Spontaneous
  Country: CA (occurrence: CA)
  Receive Date: 20230310
  Receipt Date: 20230310
  Transmission Date: 20230417
  Serious: Yes (Other)
  Sender: FDA-Public Use
  Company Number: CA-002147023-NVSC2023CA052092

PATIENT
  Age: 50 Year
  Sex: Female

DRUGS (1)
  1. CARBAMAZEPINE [Suspect]
     Active Substance: CARBAMAZEPINE
     Indication: Seizure
     Dosage: 200 MG, TID
     Route: 048

REACTIONS (5)
  - Urinary incontinence [Unknown]
  - Fall [Unknown]
  - Loss of consciousness [Unknown]
  - Posture abnormal [Unknown]
  - Drug ineffective [Unknown]
